FAERS Safety Report 5058988-4 (Version None)
Quarter: 2006Q3

REPORT INFORMATION
  Report Type: 
  Country: None (occurrence: None)
  Receive Date: 20060719
  Receipt Date: 20060703
  Transmission Date: 20061208
  Serious: Yes (Life-Threatening)
  Sender: FDA-Public Use
  Company Number: VER_0012_2006

PATIENT
  Age: 37 Year
  Sex: Female
  Weight: 56.6996 kg

DRUGS (1)
  1. TWINJECT [Suspect]
     Indication: ANAPHYLACTIC REACTION
     Dosage: 1 DF ONCE SC
     Route: 058
     Dates: start: 20060501, end: 20060501

REACTIONS (4)
  - ANAPHYLACTOID REACTION [None]
  - CONTUSION [None]
  - DRUG ADMINISTRATION ERROR [None]
  - PHARMACEUTICAL PRODUCT COMPLAINT [None]
